FAERS Safety Report 20527631 (Version 1)
Quarter: 2022Q1

REPORT INFORMATION
  Report Type: Spontaneous
  Country: US (occurrence: None)
  Receive Date: 20220228
  Receipt Date: 20220228
  Transmission Date: 20220423
  Serious: No
  Sender: FDA-Public Use
  Company Number: None

PATIENT
  Sex: Female

DRUGS (1)
  1. RITUXIMAB [Suspect]
     Active Substance: RITUXIMAB
     Dosage: OTHER FREQUENCY : WEEKLY;?
     Route: 042
     Dates: start: 20220218, end: 20220218

REACTIONS (4)
  - Throat irritation [None]
  - Ear pruritus [None]
  - Lip swelling [None]
  - Infusion related reaction [None]

NARRATIVE: CASE EVENT DATE: 20220218
